FAERS Safety Report 24692439 (Version 1)
Quarter: 2024Q4

REPORT INFORMATION
  Report Type: Spontaneous
  Country: US (occurrence: None)
  Receive Date: 20241203
  Receipt Date: 20241203
  Transmission Date: 20250115
  Serious: No
  Sender: Public
  Company Number: None

PATIENT
  Age: 76 Year
  Sex: Male
  Weight: 62 kg

DRUGS (1)
  1. EMPAGLIFLOZIN [Suspect]
     Active Substance: EMPAGLIFLOZIN
     Indication: Diabetes mellitus
     Dosage: FREQUENCY : DAILY;?
     Route: 048
     Dates: end: 20240705

REACTIONS (8)
  - Blood creatinine increased [None]
  - Urinary tract infection [None]
  - Sepsis [None]
  - Acute kidney injury [None]
  - Pneumonia aspiration [None]
  - Urinary tract candidiasis [None]
  - Therapy cessation [None]
  - Residual urine volume increased [None]

NARRATIVE: CASE EVENT DATE: 20240705
